FAERS Safety Report 4450922-0 (Version None)
Quarter: 2004Q3

REPORT INFORMATION
  Report Type: 
  Country: None (occurrence: None)
  Receive Date: 20040916
  Receipt Date: 20030409
  Transmission Date: 20050211
  Serious: Yes (Other)
  Sender: FDA-Public Use
  Company Number: US-BRISTOL-MYERS SQUIBB COMPANY-12242301

PATIENT
  Age: 37 Year
  Sex: Female

DRUGS (2)
  1. STADOL [Suspect]
     Indication: MIGRAINE
     Route: 045
     Dates: start: 19930426, end: 19941201
  2. STADOL [Suspect]
     Indication: MIGRAINE
     Dosage: RESTARTED ON 19-MAY-2000
     Dates: start: 19960322

REACTIONS (1)
  - DEPENDENCE [None]
